FAERS Safety Report 12337124 (Version 6)
Quarter: 2016Q4

REPORT INFORMATION
  Report Type: Report from Study
  Country: BR (occurrence: BR)
  Receive Date: 20160505
  Receipt Date: 20161107
  Transmission Date: 20170207
  Serious: Yes (Other)
  Sender: FDA-Public Use
  Company Number: PHHY2016BR061275

PATIENT
  Sex: Male
  Weight: 103 kg

DRUGS (2)
  1. GALVUS MET [Concomitant]
     Active Substance: METFORMIN HYDROCHLORIDE\VILDAGLIPTIN
     Indication: DIABETES MELLITUS
     Dosage: 2 DF, QD (FOR 3 YEARS)
     Route: 048
  2. SANDOSTATIN LAR DEPOT [Suspect]
     Active Substance: OCTREOTIDE ACETATE
     Indication: ACROMEGALY
     Dosage: 30 MG, QMO (EVERY 28 DAYS)
     Route: 030
     Dates: start: 200502

REACTIONS (12)
  - Visual acuity reduced [Unknown]
  - Insulin-like growth factor increased [Unknown]
  - Diabetes mellitus [Recovering/Resolving]
  - Hypertension [Recovering/Resolving]
  - Blood pressure fluctuation [Unknown]
  - Growth retardation [Unknown]
  - Visual impairment [Recovering/Resolving]
  - Retinal disorder [Not Recovered/Not Resolved]
  - Diabetes mellitus inadequate control [Unknown]
  - Weight decreased [Recovering/Resolving]
  - Drug ineffective [Unknown]
  - Discomfort [Unknown]

NARRATIVE: CASE EVENT DATE: 2005
